FAERS Safety Report 8429885-9 (Version None)
Quarter: 2012Q2

REPORT INFORMATION
  Report Type: 
  Country: None (occurrence: None)
  Receive Date: 20120523
  Receipt Date: 20120514
  Transmission Date: 20120825
  Serious: Yes (Other)
  Sender: FDA-Public Use
  Company Number: 2011027979

PATIENT
  Age: 47 Year
  Sex: Female
  Weight: 136.0791 kg

DRUGS (37)
  1. HIZENTRA [Suspect]
  2. FOLIC ACID [Concomitant]
  3. AMBIEN [Concomitant]
  4. IMURAN [Concomitant]
  5. METOPROLOL TARTRATE [Concomitant]
  6. HIZENTRA [Suspect]
     Indication: HYPOGAMMAGLOBULINAEMIA
     Dosage: SEE IMAGE, SUBCUTANEOUS
     Route: 058
     Dates: start: 20110404
  7. HIZENTRA [Suspect]
     Indication: HYPOGAMMAGLOBULINAEMIA
     Dosage: SEE IMAGE, SUBCUTANEOUS
     Route: 058
     Dates: start: 20120321, end: 20120321
  8. HIZENTRA [Suspect]
     Indication: HYPOGAMMAGLOBULINAEMIA
     Dosage: SEE IMAGE, SUBCUTANEOUS
     Route: 058
     Dates: start: 20120321, end: 20120321
  9. HIZENTRA [Suspect]
     Indication: HYPOGAMMAGLOBULINAEMIA
     Dosage: SEE IMAGE, SUBCUTANEOUS
     Route: 058
     Dates: start: 20110314
  10. HIZENTRA [Suspect]
     Indication: HYPOGAMMAGLOBULINAEMIA
     Dosage: SEE IMAGE, SUBCUTANEOUS
     Route: 058
     Dates: start: 20120512, end: 20120512
  11. HIZENTRA [Suspect]
     Indication: HYPOGAMMAGLOBULINAEMIA
     Dosage: SEE IMAGE, SUBCUTANEOUS
     Route: 058
     Dates: start: 20120312, end: 20120312
  12. HIZENTRA [Suspect]
     Indication: HYPOGAMMAGLOBULINAEMIA
     Dosage: SEE IMAGE, SUBCUTANEOUS
     Route: 058
     Dates: start: 20120321, end: 20120321
  13. HIZENTRA [Suspect]
     Indication: HYPOGAMMAGLOBULINAEMIA
     Dosage: SEE IMAGE, SUBCUTANEOUS
     Route: 058
     Dates: start: 20120512, end: 20120512
  14. HIZENTRA [Suspect]
  15. PLAQUENIL [Concomitant]
  16. LEVOTHYROXINE SODIUM [Concomitant]
  17. DIPHENHYDRAMINE HCL [Concomitant]
  18. HIZENTRA [Suspect]
  19. HIZENTRA [Suspect]
  20. CYTOMEL [Concomitant]
  21. XYZAL [Concomitant]
  22. NEXIUM [Concomitant]
  23. COUMADIN [Concomitant]
  24. WELLBUTRIN [Concomitant]
  25. SUPER B COMPLEX (SUPER B COMPLEX) [Concomitant]
  26. OS-CAL (OS-CAL) [Concomitant]
  27. SPIRONOLACTONE [Concomitant]
  28. HIZENTRA [Suspect]
  29. VITAMIN D [Concomitant]
  30. ZANAFLEX [Concomitant]
  31. ACETAMINOPHEN [Concomitant]
  32. HIZENTRA [Suspect]
  33. ZOLOFT [Concomitant]
  34. PREDNISONE TAB [Concomitant]
  35. QUINACRINE (MEPACRINE HYDROCHLORIDE) [Concomitant]
  36. MUCINEX [Concomitant]
  37. EIP-PEN (EPINEPHRINE) [Concomitant]

REACTIONS (6)
  - PRURITUS GENERALISED [None]
  - CHEST DISCOMFORT [None]
  - INFUSION SITE SWELLING [None]
  - PYREXIA [None]
  - CHILLS [None]
  - DYSPNOEA [None]
